FAERS Safety Report 6154578-0 (Version None)
Quarter: 2009Q2

REPORT INFORMATION
  Report Type: 
  Country: None (occurrence: None)
  Receive Date: 20090414
  Receipt Date: 20090403
  Transmission Date: 20091009
  Serious: Yes (Hospitalization)
  Sender: FDA-Public Use
  Company Number: US-ELI_LILLY_AND_COMPANY-US200904000960

PATIENT
  Sex: Female

DRUGS (1)
  1. PROZAC [Suspect]
     Dosage: UNK, UNKNOWN
     Route: 065

REACTIONS (2)
  - DEPRESSION [None]
  - DRUG INEFFECTIVE [None]
